FAERS Safety Report 9476801 (Version 2)
Quarter: 2013Q3

REPORT INFORMATION
  Report Type: Report from Study
  Country: US (occurrence: US)
  Receive Date: 20130826
  Receipt Date: 20130827
  Transmission Date: 20140515
  Serious: Yes (Other)
  Sender: FDA-Public Use
  Company Number: US-ABBOTT-13P-163-1135203-00

PATIENT
  Sex: Female

DRUGS (12)
  1. HUMIRA [Suspect]
     Indication: RHEUMATOID ARTHRITIS
     Dates: start: 2003
  2. METHOTREXATE [Concomitant]
     Indication: RHEUMATOID ARTHRITIS
  3. BONIVA [Concomitant]
     Indication: OSTEOPOROSIS
  4. OXYCODONE [Concomitant]
  5. PERCOCET [Concomitant]
  6. ASPIRIN [Concomitant]
     Indication: PAIN
  7. MULTIVITAMIN [Concomitant]
     Indication: PRODUCT USED FOR UNKNOWN INDICATION
  8. FOLIC ACID [Concomitant]
     Indication: PRODUCT USED FOR UNKNOWN INDICATION
  9. VITAMIN D NOS [Concomitant]
     Indication: PRODUCT USED FOR UNKNOWN INDICATION
  10. CALCIUM [Concomitant]
     Indication: PRODUCT USED FOR UNKNOWN INDICATION
  11. NORVASC [Concomitant]
     Indication: HYPERTENSION
  12. PRILOSEC [Concomitant]
     Indication: DYSPEPSIA

REACTIONS (7)
  - Coronary artery occlusion [Not Recovered/Not Resolved]
  - Intervertebral disc degeneration [Unknown]
  - Paraesthesia [Unknown]
  - Hypertension [Unknown]
  - Dyspepsia [Unknown]
  - Staphylococcal infection [Recovered/Resolved]
  - Hypoaesthesia [Unknown]
